FAERS Safety Report 15688599 (Version 5)
Quarter: 2022Q1

REPORT INFORMATION
  Report Type: Spontaneous
  Country: DE (occurrence: DE)
  Receive Date: 20181205
  Receipt Date: 20220210
  Transmission Date: 20220423
  Serious: Yes (Other)
  Sender: FDA-Public Use
  Company Number: None

PATIENT
  Sex: Male
  Weight: 80 kg

DRUGS (5)
  1. FLUOROURACIL [Suspect]
     Active Substance: FLUOROURACIL
     Indication: Adenocarcinoma of colon
     Dosage: LAST ADMINISTRATION BEFORE AE ONSET: 01-AUG-2017
     Route: 042
     Dates: start: 20170103, end: 20170801
  2. IRINOTECAN HYDROCHLORIDE [Suspect]
     Active Substance: IRINOTECAN HYDROCHLORIDE
     Indication: Adenocarcinoma of colon
     Dosage: 355 MG, UNK
     Route: 042
     Dates: start: 20170103, end: 20170801
  3. PANITUMUMAB [Suspect]
     Active Substance: PANITUMUMAB
     Indication: Adenocarcinoma of colon
     Dosage: LAST ADMINISTRATION BEFORE AE ONSET: 01-AUG-2017, 480 MG, UNK
     Route: 042
     Dates: start: 20170131, end: 20170801
  4. FOLATE SODIUM [Suspect]
     Active Substance: FOLATE SODIUM
     Indication: Adenocarcinoma of colon
     Dosage: LAST ADMINISTRATION BEFORE AE ONSET: 01-AUG-2017, 760 MG, UNK
     Route: 042
     Dates: start: 20170103, end: 20170801
  5. PALONOSETRON HYDROCHLORIDE [Concomitant]
     Active Substance: PALONOSETRON HYDROCHLORIDE
     Indication: Prophylaxis
     Dosage: 8 HOURS AND 40 MINUTES PRIOR TO CHEMOTHERAPY, 250 MUG, UNK

REACTIONS (2)
  - Skin infection [Recovered/Resolved]
  - Device related infection [Recovered/Resolved]

NARRATIVE: CASE EVENT DATE: 20170816
